FAERS Safety Report 6767645-5 (Version None)
Quarter: 2010Q2

REPORT INFORMATION
  Report Type: 
  Country: None (occurrence: None)
  Receive Date: 20100614
  Receipt Date: 20100607
  Transmission Date: 20101027
  Serious: Yes (Other)
  Sender: FDA-Public Use
  Company Number: CA-ASTRAZENECA-2010SE26552

PATIENT
  Age: 51 Year
  Sex: Male
  Weight: 104.3 kg

DRUGS (4)
  1. CRESTOR [Suspect]
     Route: 048
  2. DIOVAN [Concomitant]
  3. ASPIRIN [Concomitant]
  4. HYDROCHLOROTHIAZIDE [Concomitant]

REACTIONS (2)
  - PAIN IN EXTREMITY [None]
  - SERUM FERRITIN INCREASED [None]
